FAERS Safety Report 14554282 (Version 1)
Quarter: 2018Q1

REPORT INFORMATION
  Report Type: Spontaneous
  Country: US (occurrence: GB)
  Receive Date: 20180220
  Receipt Date: 20180220
  Transmission Date: 20180509
  Serious: Yes (Other)
  Sender: FDA-Public Use
  Company Number: US-PFIZER INC-2018065165

PATIENT
  Age: 27 Year
  Sex: Male
  Weight: 70.31 kg

DRUGS (1)
  1. CAVERJECT [Suspect]
     Active Substance: ALPROSTADIL
     Indication: NUCLEAR MAGNETIC RESONANCE IMAGING
     Dosage: 5 MCG INJECTION INTO THE PENIS
     Dates: start: 20170117

REACTIONS (5)
  - Penis disorder [Not Recovered/Not Resolved]
  - Product use in unapproved indication [Unknown]
  - Erection increased [Recovered/Resolved with Sequelae]
  - Penile swelling [Unknown]
  - Incorrect dose administered [Unknown]

NARRATIVE: CASE EVENT DATE: 20170117
